FAERS Safety Report 5308665-7 (Version None)
Quarter: 2007Q2

REPORT INFORMATION
  Report Type: 
  Country: None (occurrence: None)
  Receive Date: 20070426
  Receipt Date: 20070417
  Transmission Date: 20071010
  Serious: Yes (Other)
  Sender: FDA-Public Use
  Company Number: IN-AVENTIS-200713447GDDC

PATIENT
  Age: 60 Year
  Sex: Male

DRUGS (5)
  1. ARAVA [Suspect]
     Dosage: DOSE: 2 TABLETS
     Route: 048
     Dates: start: 20070315, end: 20070411
  2. METHOTREXATE [Concomitant]
     Route: 030
  3. PARAFFIN LIQUID [Concomitant]
     Dosage: DOSE QUANTITY: 100
     Route: 061
  4. CLOBETASOL PROPIONATE [Concomitant]
     Dosage: DOSE: UNK
     Route: 061
  5. LEVOCETIRIZINE [Concomitant]
     Route: 048

REACTIONS (5)
  - ARTHRALGIA [None]
  - DRUG INEFFECTIVE [None]
  - JOINT STIFFNESS [None]
  - PSORIASIS [None]
  - SKIN LESION [None]
